FAERS Safety Report 6697534-6 (Version None)
Quarter: 2010Q2

REPORT INFORMATION
  Report Type: 
  Country: None (occurrence: None)
  Receive Date: 20100422
  Receipt Date: 20100407
  Transmission Date: 20101027
  Serious: Yes (Death)
  Sender: FDA-Public Use
  Company Number: 2010001294

PATIENT
  Age: 50 Year
  Sex: Female

DRUGS (3)
  1. ERLOTINIB (ERLOTINIB) (TABLET) (ERLOTINIB) [Suspect]
     Indication: OVARIAN CANCER
     Dosage: ORAL
     Route: 048
     Dates: start: 20090528, end: 20100322
  2. BEVACIZUMAB [Suspect]
     Indication: OVARIAN CANCER
     Dosage: (15 MG/KG), INTRAVENOUS
     Route: 042
     Dates: start: 20090122, end: 20090507
  3. CARBOPLATIN [Suspect]
     Indication: OVARIAN CANCER
     Dates: start: 20090122, end: 20090507

REACTIONS (1)
  - CARDIAC ARREST [None]
